FAERS Safety Report 8825861 (Version 1)
Quarter: 2012Q4

REPORT INFORMATION
  Report Type: 
  Country: JP (occurrence: JP)
  Receive Date: 20121005
  Receipt Date: 20121005
  Transmission Date: 20130627
  Serious: Yes (Other)
  Sender: FDA-Public Use
  Company Number: JP-ROCHE-1142301

PATIENT
  Sex: Male

DRUGS (2)
  1. HERCEPTIN [Suspect]
     Indication: GASTRIC CANCER
     Route: 041
  2. XELODA [Suspect]
     Indication: METASTATIC GASTRIC CANCER
     Dosage: It is one administering weekly holiday medicine for two weeks.
     Route: 048

REACTIONS (1)
  - Cerebral infarction [Recovered/Resolved with Sequelae]
